FAERS Safety Report 7002117 (Version 11)
Quarter: 2018Q4

REPORT INFORMATION
  Report Type: Report from Study
  Country: JP (occurrence: JP)
  Receive Date: 20090526
  Receipt Date: 20181106
  Transmission Date: 20190205
  Serious: Yes (Hospitalization)
  Sender: FDA-Public Use
  Company Number: PHHY2009JP16514

PATIENT
  Age: 68 Year
  Sex: Male

DRUGS (3)
  1. TASIGNA [Suspect]
     Active Substance: NILOTINIB
     Indication: CHRONIC MYELOID LEUKAEMIA
     Dosage: 800 MG, QD
     Route: 048
     Dates: start: 20090422, end: 20090430
  2. SOLDEM [Concomitant]
     Active Substance: DEXTROSE\POTASSIUM CHLORIDE\SODIUM CHLORIDE\SODIUM LACTATE
     Indication: PRODUCT USED FOR UNKNOWN INDICATION
     Dosage: UNK
     Route: 065
     Dates: start: 20090501
  3. LASIX [Concomitant]
     Active Substance: FUROSEMIDE
     Indication: PRODUCT USED FOR UNKNOWN INDICATION
     Dosage: UNK
     Route: 065
     Dates: start: 20090501

REACTIONS (29)
  - Depressed level of consciousness [Unknown]
  - Ejection fraction decreased [Unknown]
  - Blood lactate dehydrogenase increased [Recovered/Resolved]
  - Atrial fibrillation [Unknown]
  - Hyperglycaemia [Not Recovered/Not Resolved]
  - Haemoglobin decreased [Recovering/Resolving]
  - Myocarditis [Recovered/Resolved]
  - Interstitial lung disease [Recovered/Resolved]
  - Infection [Recovered/Resolved]
  - Concomitant disease aggravated [Unknown]
  - Cardiomyopathy [Recovered/Resolved]
  - Dizziness [Recovering/Resolving]
  - Renal impairment [Recovering/Resolving]
  - Urine output increased [Unknown]
  - Angiopathy [Unknown]
  - Chest discomfort [Unknown]
  - Pleural effusion [Unknown]
  - Sinus tachycardia [Unknown]
  - Respiratory distress [Recovering/Resolving]
  - Electrocardiogram abnormal [Recovered/Resolved]
  - Red blood cell count decreased [Recovering/Resolving]
  - Blood bilirubin increased [Recovered/Resolved]
  - Lymphopenia [Not Recovered/Not Resolved]
  - Blood bilirubin abnormal [Unknown]
  - Aspartate aminotransferase increased [Unknown]
  - Pulmonary oedema [Recovered/Resolved]
  - White blood cell count increased [Recovered/Resolved]
  - Haematocrit decreased [Recovering/Resolving]
  - Monocyte count increased [Recovered/Resolved]

NARRATIVE: CASE EVENT DATE: 20090501
